FAERS Safety Report 18087670 (Version 1)
Quarter: 2020Q3

REPORT INFORMATION
  Report Type: Spontaneous
  Country: US (occurrence: US)
  Receive Date: 20200729
  Receipt Date: 20200729
  Transmission Date: 20201103
  Serious: Yes (Other)
  Sender: FDA-Public Use
  Company Number: US-SMITH AND NEPHEW, INC-2020SMT00054

PATIENT
  Age: 54 Year
  Sex: Male
  Weight: 106.58 kg

DRUGS (4)
  1. LISINOPRIL. [Concomitant]
     Active Substance: LISINOPRIL
     Dosage: 20 MG, 1X/DAY
  2. GLIPIZIDE. [Concomitant]
     Active Substance: GLIPIZIDE
     Dosage: 5 MG, 1X/DAY
  3. METFORMIN [Concomitant]
     Active Substance: METFORMIN HYDROCHLORIDE
     Dosage: 500 MG, 1X/DAY
  4. REGRANEX [Suspect]
     Active Substance: BECAPLERMIN
     Indication: DIABETIC FOOT
     Dosage: UNK ^ON FOR 12 HOURS OFF FOR 12 HOURS^
     Route: 061
     Dates: start: 20200613, end: 20200622

REACTIONS (8)
  - Osteomyelitis [Not Recovered/Not Resolved]
  - Skin exfoliation [Not Recovered/Not Resolved]
  - Swelling [Not Recovered/Not Resolved]
  - Oedema peripheral [Not Recovered/Not Resolved]
  - Wound necrosis [Not Recovered/Not Resolved]
  - Wound complication [Not Recovered/Not Resolved]
  - Wound drainage [Not Recovered/Not Resolved]
  - Excessive granulation tissue [Not Recovered/Not Resolved]

NARRATIVE: CASE EVENT DATE: 202006
